FAERS Safety Report 11890787 (Version 4)
Quarter: 2016Q3

REPORT INFORMATION
  Report Type: Spontaneous
  Country: JP (occurrence: JP)
  Receive Date: 20160106
  Receipt Date: 20160811
  Transmission Date: 20161109
  Serious: Yes (Other)
  Sender: FDA-Public Use
  Company Number: JP-ROCHE-1674633

PATIENT
  Age: 87 Year
  Sex: Female
  Weight: 42 kg

DRUGS (4)
  1. RIVOTRIL [Suspect]
     Active Substance: CLONAZEPAM
     Indication: EPILEPSY
     Route: 048
     Dates: start: 20110620, end: 20151127
  2. MEDLENIK [Concomitant]
     Active Substance: CUPRIC SULFATE\FERRIC CHLORIDE\MANGANESE CHLORIDE\POTASSIUM IODIDE\ZINC SULFATE
     Route: 042
     Dates: start: 20150224
  3. SUCRALFATE. [Concomitant]
     Active Substance: SUCRALFATE
     Indication: EPILEPSY
     Route: 048
     Dates: start: 20101216
  4. URSODEOXYCHOLIC ACID [Concomitant]
     Active Substance: URSODIOL
     Indication: EPILEPSY
     Route: 048
     Dates: start: 20150120

REACTIONS (2)
  - Bradycardia [Recovered/Resolved]
  - Cardiac failure [Unknown]

NARRATIVE: CASE EVENT DATE: 20151126
